FAERS Safety Report 6263504-5 (Version None)
Quarter: 2009Q3

REPORT INFORMATION
  Report Type: 
  Country: None (occurrence: None)
  Receive Date: 20090710
  Receipt Date: 20090324
  Transmission Date: 20100115
  Serious: No
  Sender: FDA-Public Use
  Company Number: A0775061A

PATIENT
  Age: 81 Year
  Sex: Female

DRUGS (14)
  1. TYKERB [Suspect]
     Indication: BREAST CANCER
     Dosage: 750MG PER DAY
     Route: 048
     Dates: start: 20090217
  2. PRAVACHOL [Concomitant]
  3. HYZAAR [Concomitant]
  4. COZAAR [Concomitant]
  5. METHIMAZOLE [Concomitant]
  6. DOXYCLINE [Concomitant]
  7. FEXOFENADINE [Concomitant]
  8. FELODIPINE [Concomitant]
  9. POTASSIUM CHLORIDE [Concomitant]
  10. TOPROL-XL [Concomitant]
  11. LEVOTHYROXINE SODIUM [Concomitant]
  12. OMEPRAZOLE [Concomitant]
  13. ASPIRIN [Concomitant]
  14. ARIMIDEX [Concomitant]

REACTIONS (1)
  - DIARRHOEA [None]
